FAERS Safety Report 9669217 (Version 1)
Quarter: 2013Q4

REPORT INFORMATION
  Report Type: Spontaneous
  Country: US (occurrence: None)
  Receive Date: 20131104
  Receipt Date: 20131104
  Transmission Date: 20140711
  Serious: Yes (Other)
  Sender: FDA-Public Use
  Company Number: None

PATIENT
  Age: 47 Year
  Sex: Male
  Weight: 72.58 kg

DRUGS (2)
  1. VIIBYRD [Suspect]
     Indication: GRIEF REACTION
     Dosage: 40 MG PILL, ONCE DAILY, TAKEN BY MOUTH
     Route: 048
  2. VIIBYRD [Suspect]
     Indication: DEPRESSION
     Dosage: 40 MG PILL, ONCE DAILY, TAKEN BY MOUTH
     Route: 048

REACTIONS (1)
  - International normalised ratio increased [None]
